FAERS Safety Report 5473389-2 (Version None)
Quarter: 2007Q3

REPORT INFORMATION
  Report Type: 
  Country: None (occurrence: None)
  Receive Date: 20070824
  Receipt Date: 20070515
  Transmission Date: 20080115
  Serious: Yes (Hospitalization)
  Sender: FDA-Public Use
  Company Number: WAES 0705USA02958

PATIENT
  Sex: Female

DRUGS (3)
  1. VYTORIN [Suspect]
     Dosage: PO
     Route: 048
  2. GLUCOPHAGE [Concomitant]
  3. [THERAPY UNSPECIFIED] [Concomitant]

REACTIONS (1)
  - RHABDOMYOLYSIS [None]
